FAERS Safety Report 4940067-5 (Version None)
Quarter: 2006Q1

REPORT INFORMATION
  Report Type: 
  Country: None (occurrence: None)
  Receive Date: 20060310
  Receipt Date: 20060227
  Transmission Date: 20060701
  Serious: Yes (Other)
  Sender: FDA-Public Use
  Company Number: 2006AP00966

PATIENT
  Age: 60 Year
  Sex: Female

DRUGS (1)
  1. TENORMIN [Suspect]
     Indication: HYPERTENSION
     Route: 048
     Dates: start: 20050824, end: 20060207

REACTIONS (2)
  - GINGIVAL BLEEDING [None]
  - HAEMORRHAGE SUBCUTANEOUS [None]
